FAERS Safety Report 9189971 (Version 1)
Quarter: 2013Q1

REPORT INFORMATION
  Report Type: Spontaneous
  Country: US (occurrence: US)
  Receive Date: 20130326
  Receipt Date: 20130326
  Transmission Date: 20140127
  Serious: No
  Sender: FDA-Public Use
  Company Number: US-PFIZER INC-2013092191

PATIENT
  Age: 53 Year
  Sex: Male
  Weight: 106.58 kg

DRUGS (3)
  1. VIAGRA [Suspect]
     Indication: ERECTILE DYSFUNCTION
     Dosage: AS NEEDED
     Route: 048
     Dates: start: 2009, end: 2010
  2. DEPAKOTE [Concomitant]
     Indication: BIPOLAR DISORDER
     Dosage: 1500 MG, 1X/DAY
     Route: 048
     Dates: start: 2004, end: 2012
  3. SYNTHROID [Concomitant]
     Indication: HYPOTHYROIDISM
     Dosage: 200 MG, 1X/DAY
     Route: 048
     Dates: start: 2003

REACTIONS (1)
  - Drug ineffective [Recovered/Resolved]
